FAERS Safety Report 5145856-2 (Version None)
Quarter: 2006Q4

REPORT INFORMATION
  Report Type: 
  Country: None (occurrence: None)
  Receive Date: 20061108
  Receipt Date: 20060818
  Transmission Date: 20070319
  Serious: Yes (Life-Threatening, Hospitalization, Disabling, Other)
  Sender: FDA-Public Use
  Company Number: US-BAYER-200613521BCC

PATIENT
  Age: 89 Year
  Sex: Female
  Weight: 45 kg

DRUGS (10)
  1. ALEVE [Suspect]
     Indication: ARTHRALGIA
     Dosage: TOTAL DAILY DOSE: 440 MG  UNIT DOSE: 220 MG
     Route: 048
     Dates: start: 20040101, end: 20060701
  2. EXCEDRIN (MIGRAINE) [Suspect]
     Route: 048
     Dates: start: 20040101
  3. DUONEB [Concomitant]
  4. ALBUTEROL [Concomitant]
     Indication: CHRONIC OBSTRUCTIVE PULMONARY DISEASE
  5. ATROVENT [Concomitant]
     Indication: CHRONIC OBSTRUCTIVE PULMONARY DISEASE
  6. COMBIVENT [Concomitant]
     Indication: CHRONIC OBSTRUCTIVE PULMONARY DISEASE
  7. ACCOLATE [Concomitant]
     Dosage: TOTAL DAILY DOSE: 40 MG  UNIT DOSE: 20 MG
     Route: 048
  8. ATIVAN [Concomitant]
     Dosage: TOTAL DAILY DOSE: 1.5 MG  UNIT DOSE: 0.5 MG
  9. OXYGEN [Concomitant]
  10. ALCOHOL [Concomitant]

REACTIONS (26)
  - ABDOMINAL PAIN [None]
  - ABDOMINAL TENDERNESS [None]
  - ANAEMIA [None]
  - ATRIAL FIBRILLATION [None]
  - BLOOD PRESSURE DECREASED [None]
  - BLOOD PRESSURE INCREASED [None]
  - CHOLELITHIASIS [None]
  - CHRONIC OBSTRUCTIVE PULMONARY DISEASE [None]
  - COUGH [None]
  - DECREASED APPETITE [None]
  - DEHYDRATION [None]
  - DIARRHOEA [None]
  - DUODENAL ULCER PERFORATION [None]
  - DYSPNOEA [None]
  - ERUCTATION [None]
  - ESCHERICHIA URINARY TRACT INFECTION [None]
  - FLATULENCE [None]
  - HYPERCAPNIA [None]
  - INTESTINAL PERFORATION [None]
  - NAUSEA [None]
  - NEPHROLITHIASIS [None]
  - RENAL FAILURE ACUTE [None]
  - RENAL TUBULAR NECROSIS [None]
  - RESPIRATORY FAILURE [None]
  - VASCULAR CALCIFICATION [None]
  - VOMITING [None]
